FAERS Safety Report 9046959 (Version 1)
Quarter: 2013Q1

REPORT INFORMATION
  Report Type: Spontaneous
  Country: US (occurrence: US)
  Receive Date: 20130204
  Receipt Date: 20130204
  Transmission Date: 20140127
  Serious: Yes (Other)
  Sender: FDA-Public Use
  Company Number: US-SANOFI-AVENTIS-2013SA007182

PATIENT
  Sex: Female

DRUGS (3)
  1. LANTUS SOLOSTAR [Suspect]
     Indication: TYPE 2 DIABETES MELLITUS
     Dosage: DOSE:22 UNIT(S)
     Route: 051
     Dates: start: 2004
  2. SOLOSTAR [Suspect]
     Indication: TYPE 2 DIABETES MELLITUS
  3. HUMULIN 70/30 [Concomitant]

REACTIONS (8)
  - Coronary artery bypass [Unknown]
  - Macular degeneration [Unknown]
  - Diabetic retinopathy [Unknown]
  - Infection [Unknown]
  - Cystitis [Unknown]
  - Fungal infection [Unknown]
  - Weight decreased [Unknown]
  - Glycosylated haemoglobin increased [Unknown]
